FAERS Safety Report 15806859 (Version 5)
Quarter: 2019Q1

REPORT INFORMATION
  Report Type: Spontaneous
  Country: US (occurrence: US)
  Receive Date: 20190110
  Receipt Date: 20190314
  Transmission Date: 20190417
  Serious: Yes (Hospitalization, Other)
  Sender: FDA-Public Use
  Company Number: US-GLAXOSMITHKLINE-US2018GSK235422

PATIENT
  Age: 57 Year
  Sex: Male

DRUGS (2)
  1. ALBUTEROL. [Suspect]
     Active Substance: ALBUTEROL
     Indication: PRODUCT USED FOR UNKNOWN INDICATION
     Dosage: UNK
  2. BREO ELLIPTA [Suspect]
     Active Substance: FLUTICASONE FUROATE\VILANTEROL TRIFENATATE
     Indication: ASTHMA
     Dosage: UNK
     Route: 055
     Dates: start: 201705

REACTIONS (14)
  - Pyrexia [Not Recovered/Not Resolved]
  - Ill-defined disorder [Unknown]
  - Asthma [Not Recovered/Not Resolved]
  - Apparent death [Unknown]
  - Product distribution issue [Unknown]
  - Pulmonary pain [Unknown]
  - Malaise [Unknown]
  - Product dose omission [Unknown]
  - Drug effect incomplete [Unknown]
  - Cough [Not Recovered/Not Resolved]
  - Sinusitis [Not Recovered/Not Resolved]
  - Chest discomfort [Unknown]
  - Pneumonitis [Unknown]
  - Therapy cessation [Unknown]

NARRATIVE: CASE EVENT DATE: 201811
